FAERS Safety Report 6556665-1 (Version None)
Quarter: 2010Q1

REPORT INFORMATION
  Report Type: 
  Country: None (occurrence: None)
  Receive Date: 20100128
  Receipt Date: 20100119
  Transmission Date: 20100710
  Serious: Yes (Hospitalization, Other)
  Sender: FDA-Public Use
  Company Number: DE-PFIZER INC-2009288801

PATIENT
  Age: 60 Year
  Sex: Male
  Weight: 58.05 kg

DRUGS (6)
  1. SORTIS [Interacting]
     Indication: HYPERCHOLESTEROLAEMIA
     Dosage: 40 MG, 1X/DAY
     Route: 048
     Dates: start: 20090319, end: 20091026
  2. LAIF [Interacting]
     Indication: MOOD ALTERED
     Dosage: 600 MG, AS NEEDED, IRREGULARLY, APPROX. TWICE WEEKLY
     Route: 048
     Dates: start: 20090201
  3. LAIF [Interacting]
     Indication: NERVOUSNESS
  4. PROPECIA [Suspect]
     Indication: ALOPECIA
     Dosage: 1.25 MG, 1X/DAY
     Route: 048
  5. DESFLURANE [Suspect]
     Indication: INGUINAL HERNIA REPAIR
     Dosage: UNK
     Dates: start: 20090930, end: 20090930
  6. VALERIAN EXTRACT [Concomitant]
     Dosage: UNK

REACTIONS (4)
  - DRUG INTERACTION [None]
  - HEPATITIS [None]
  - INGUINAL HERNIA REPAIR [None]
  - LYMPHADENOPATHY [None]
